FAERS Safety Report 4817581-6 (Version None)
Quarter: 2005Q4

REPORT INFORMATION
  Report Type: 
  Country: None (occurrence: None)
  Receive Date: 20051031
  Receipt Date: 20051020
  Transmission Date: 20060501
  Serious: Yes (Hospitalization)
  Sender: FDA-Public Use
  Company Number: 205672

PATIENT
  Age: 36 Year
  Sex: Female

DRUGS (12)
  1. RITUXAN [Suspect]
     Indication: B-CELL LYMPHOMA
     Dosage: 500 MG, Q3W, INTRAVENOUS
     Route: 042
     Dates: start: 20030930
  2. ENDOXAN            (CYCLOPHOSMPHAMIDE) [Concomitant]
  3. DOXORUBICIN HYDROCHLORIDE [Concomitant]
  4. ONCOVIN [Concomitant]
  5. G-CSF (FILGRASTIM) [Concomitant]
  6. TRIMETHOPRIM-SULFAMETHOXAZOLE [Concomitant]
  7. CYCLOSPORINE [Concomitant]
  8. POLARAMINE [Concomitant]
  9. BRUFEN (IBUPROFEN) [Concomitant]
  10. NIZATIDINE [Concomitant]
  11. PURSENNID (SNNOSIDES) [Concomitant]
  12. METHYCOBAL (MECOBALAMIN) [Concomitant]

REACTIONS (2)
  - APLASIA PURE RED CELL [None]
  - ERYTHEMA INFECTIOSUM [None]
